FAERS Safety Report 17619778 (Version 1)
Quarter: 2020Q2

REPORT INFORMATION
  Report Type: Spontaneous
  Country: US (occurrence: US)
  Receive Date: 20200402
  Receipt Date: 20200402
  Transmission Date: 20200713
  Serious: No
  Sender: FDA-Public Use
  Company Number: US-GALDERMA-US19074147

PATIENT

DRUGS (3)
  1. CERADAN MOISTURIZER [Concomitant]
     Indication: DRY SKIN
     Route: 061
  2. DIFFERIN GEL [Suspect]
     Active Substance: ADAPALENE
     Indication: ACNE
     Dosage: 0.1%
     Route: 061
     Dates: start: 201911
  3. DIFFERIN GEL [Suspect]
     Active Substance: ADAPALENE
     Indication: SCAR

REACTIONS (4)
  - Skin exfoliation [Unknown]
  - Acne cystic [Unknown]
  - Acne [Unknown]
  - Dry skin [Unknown]

NARRATIVE: CASE EVENT DATE: 2019
